FAERS Safety Report 23981642 (Version 1)
Quarter: 2024Q2

REPORT INFORMATION
  Report Type: Spontaneous
  Country: CH (occurrence: CH)
  Receive Date: 20240617
  Receipt Date: 20240617
  Transmission Date: 20240716
  Serious: Yes (Hospitalization)
  Sender: FDA-Public Use
  Company Number: CH-TAKEDA-2024TUS058842

PATIENT
  Age: 75 Year
  Sex: Male
  Weight: 89.8 kg

DRUGS (8)
  1. PANTOZOL [Suspect]
     Active Substance: PANTOPRAZOLE SODIUM
     Dosage: 40 MG, 1X/DAY
     Route: 048
  2. DOCETAXEL [Suspect]
     Active Substance: DOCETAXEL\DOCETAXEL ANHYDROUS
     Indication: Prostate cancer metastatic
     Dosage: 91 MG, 2X/WEEK
     Route: 042
     Dates: start: 20240223, end: 20240404
  3. NUBEQA [Suspect]
     Active Substance: DAROLUTAMIDE
     Dosage: 300 MILLIGRAM, BID
     Route: 048
     Dates: start: 20231221
  4. GOSERELIN [Suspect]
     Active Substance: GOSERELIN
     Indication: Prostate cancer
     Dosage: UNK UNK, Q3MONTHS
     Route: 058
     Dates: start: 20230810
  5. CASODEX [Suspect]
     Active Substance: BICALUTAMIDE
     Dosage: 50 MILLIGRAM, QD
     Route: 048
     Dates: start: 20231107
  6. DENOSUMAB [Suspect]
     Active Substance: DENOSUMAB
     Dosage: UNK, Q4WEEKS
     Route: 058
     Dates: start: 20240321
  7. ENALAPRIL [Suspect]
     Active Substance: ENALAPRIL
     Dosage: 20 MILLIGRAM, QD
     Route: 048
  8. TAMSULOSIN HYDROCHLORIDE [Suspect]
     Active Substance: TAMSULOSIN HYDROCHLORIDE
     Dosage: 0.4 MILLIGRAM, QD
     Route: 048

REACTIONS (1)
  - Lupus-like syndrome [Recovering/Resolving]
